FAERS Safety Report 5288466-9 (Version None)
Quarter: 2007Q2

REPORT INFORMATION
  Report Type: 
  Country: None (occurrence: None)
  Receive Date: 20070405
  Receipt Date: 20070330
  Transmission Date: 20071010
  Serious: No
  Sender: FDA-Public Use
  Company Number: 2006UW07987

PATIENT
  Age: 704 Month
  Sex: Female
  Weight: 77.3 kg

DRUGS (4)
  1. SEROQUEL [Suspect]
     Indication: INSOMNIA
     Route: 048
  2. PROZAC [Concomitant]
     Indication: DEPRESSION
     Dates: start: 19950101
  3. METFORMIN HCL [Concomitant]
     Indication: DIABETES MELLITUS
     Dates: start: 20061201
  4. METFORMIN HCL [Concomitant]
     Indication: HYPERGLYCAEMIA
     Dates: start: 20061201

REACTIONS (2)
  - DIABETES MELLITUS [None]
  - INJURY [None]
